FAERS Safety Report 12361210 (Version 2)
Quarter: 2019Q4

REPORT INFORMATION
  Report Type: Spontaneous
  Country: US (occurrence: US)
  Receive Date: 20160512
  Receipt Date: 20191216
  Transmission Date: 20200122
  Serious: No
  Sender: FDA-Public Use
  Company Number: US-UCBSA-2015027994

PATIENT
  Sex: Male

DRUGS (1)
  1. CIMZIA [Suspect]
     Active Substance: CERTOLIZUMAB PEGOL
     Indication: PSORIATIC ARTHROPATHY
     Dosage: 200 MG,FREQ VARIES(DECIDED TIME BETWEEN INJECTIONS SO THAT THERE WAS 2 MONTH BETWEEN LAST 2 INJECTN)
     Route: 058
     Dates: start: 201503, end: 2015

REACTIONS (4)
  - Mood altered [Unknown]
  - Unevaluable event [Unknown]
  - Off label use [Unknown]
  - Arthralgia [Not Recovered/Not Resolved]

NARRATIVE: CASE EVENT DATE: 2015
